FAERS Safety Report 8916367 (Version 3)
Quarter: 2013Q2

REPORT INFORMATION
  Report Type: Spontaneous
  Country: GB (occurrence: GB)
  Receive Date: 20121120
  Receipt Date: 20130613
  Transmission Date: 20140414
  Serious: Yes (Other)
  Sender: FDA-Public Use
  Company Number: GB-SANOFI-AVENTIS-2012SA082928

PATIENT
  Age: 79 Year
  Sex: Male

DRUGS (12)
  1. METFORMIN [Suspect]
     Indication: DIABETES MELLITUS
     Dosage: FREQUENCY: EVERY MORNING AND EVERY NIGHT?DOSE: 6 IN TOTAL
     Route: 065
  2. LANTUS [Suspect]
     Indication: TYPE 2 DIABETES MELLITUS
     Dosage: EVERY MORNING DOSE:17 UNIT(S)
     Route: 065
  3. GLICLAZIDE [Concomitant]
     Indication: DIABETES MELLITUS
     Dosage: STRENGTH: 80 MG
  4. AMLODIPINE [Concomitant]
     Dosage: STRENGTH:5 MG
  5. RAMIPRIL [Concomitant]
     Dosage: STRENGTH: 5 MG
  6. TRITACE [Concomitant]
     Dosage: STRENGTH: 10 MG
     Route: 048
  7. BRILIQUE [Concomitant]
     Dosage: STRENGTH: 90 MG
  8. BISOPROLOL [Concomitant]
     Indication: CARDIAC DISORDER
  9. ASPIRIN [Concomitant]
     Dosage: STRENGTH: 75 MG?DISPERSIBLE
  10. ZYDOL [Concomitant]
     Dosage: STRENGTH: 50 MG
  11. PARACETAMOL [Concomitant]
     Dosage: STRENGTH: 500 MG?FORM: CAPLETS
  12. OMEPRAZOLE [Concomitant]
     Dosage: STRENGTH: 40 MG
     Route: 048

REACTIONS (1)
  - Dyspnoea at rest [Not Recovered/Not Resolved]
